FAERS Safety Report 7788560-4 (Version None)
Quarter: 2011Q3

REPORT INFORMATION
  Report Type: 
  Country: None (occurrence: None)
  Receive Date: 20110930
  Receipt Date: 20110926
  Transmission Date: 20111222
  Serious: Yes (Hospitalization)
  Sender: FDA-Public Use
  Company Number: NL-AMGEN-NLDSP2011042056

PATIENT
  Age: 64 Year
  Sex: Female

DRUGS (2)
  1. NEULASTA [Suspect]
     Indication: CHEMOTHERAPY
     Dosage: 6 MG, AFTER CHEMO
     Route: 058
     Dates: start: 20110729
  2. ANTINEOPLASTIC AGENTS [Concomitant]
     Indication: NON-HODGKIN'S LYMPHOMA

REACTIONS (3)
  - DEHYDRATION [None]
  - FUNGAL INFECTION [None]
  - DELIRIUM [None]
